FAERS Safety Report 15608437 (Version 2)
Quarter: 2018Q4

REPORT INFORMATION
  Report Type: Spontaneous
  Country: US (occurrence: US)
  Receive Date: 20181112
  Receipt Date: 20181122
  Transmission Date: 20190205
  Serious: No
  Sender: FDA-Public Use
  Company Number: US-BEH-2018096598

PATIENT
  Age: 52 Year
  Sex: Female

DRUGS (22)
  1. GABAPENTIN. [Concomitant]
     Active Substance: GABAPENTIN
  2. RANITIDINE HCL [Concomitant]
     Active Substance: RANITIDINE HYDROCHLORIDE
  3. VITAMIN B12 [Concomitant]
     Active Substance: CYANOCOBALAMIN
  4. HYDROCHLOROTHIAZIDE. [Concomitant]
     Active Substance: HYDROCHLOROTHIAZIDE
  5. SOMA [Concomitant]
     Active Substance: CARISOPRODOL
  6. PRIVIGEN [Suspect]
     Active Substance: HUMAN IMMUNOGLOBULIN G
     Indication: MYASTHENIA GRAVIS
     Dosage: 20 G, ONCE FOR 3 DAYS
     Route: 042
     Dates: start: 20181105
  7. EPIPEN [Concomitant]
     Active Substance: EPINEPHRINE
  8. PRIVIGEN [Suspect]
     Active Substance: HUMAN IMMUNOGLOBULIN G
     Dosage: UNK
     Route: 042
     Dates: start: 2017
  9. MULTIPLE VITAMINS [Concomitant]
     Active Substance: VITAMINS
  10. TRAMADOL HCL [Concomitant]
     Active Substance: TRAMADOL HYDROCHLORIDE
  11. DICYCLOMINE HCL [Concomitant]
     Active Substance: DICYCLOMINE HYDROCHLORIDE
  12. IMURAN [Concomitant]
     Active Substance: AZATHIOPRINE
  13. PROTONIX [Concomitant]
     Active Substance: PANTOPRAZOLE SODIUM
  14. VITAMIN D W/VITAMIN E [Concomitant]
     Dosage: 50000 IU, UNK
     Route: 065
  15. HYDROCODONE BITARTRATE AND ACETAMINOPHEN [Concomitant]
     Active Substance: ACETAMINOPHEN\HYDROCODONE BITARTRATE
  16. MELOXICAM. [Concomitant]
     Active Substance: MELOXICAM
  17. MIRALAX [Concomitant]
     Active Substance: POLYETHYLENE GLYCOL 3350
  18. NEXPLANON [Concomitant]
     Active Substance: ETONOGESTREL
  19. PREDNISONE. [Concomitant]
     Active Substance: PREDNISONE
  20. PROAIR HFA [Concomitant]
     Active Substance: ALBUTEROL SULFATE
  21. CLONAZEPAM. [Concomitant]
     Active Substance: CLONAZEPAM
  22. IRON [Concomitant]
     Active Substance: IRON

REACTIONS (2)
  - Abdominal discomfort [Not Recovered/Not Resolved]
  - Asthenia [Not Recovered/Not Resolved]

NARRATIVE: CASE EVENT DATE: 201811
